FAERS Safety Report 20607667 (Version 1)
Quarter: 2022Q1

REPORT INFORMATION
  Report Type: Report from Study
  Country: US (occurrence: US)
  Receive Date: 20220317
  Receipt Date: 20220317
  Transmission Date: 20220423
  Serious: No
  Sender: FDA-Public Use
  Company Number: US-NOVARTISTESTPH-NVSC2022US061254

PATIENT
  Sex: Male
  Weight: 183 kg

DRUGS (1)
  1. PROMACTA [Suspect]
     Active Substance: ELTROMBOPAG OLAMINE
     Indication: Immune thrombocytopenia
     Dosage: 75 MG, QD (TAKE ONE TABLET BY MOUTH EVERY DAY)
     Route: 048

REACTIONS (2)
  - Pruritus [Unknown]
  - Platelet count decreased [Unknown]
